FAERS Safety Report 24455529 (Version 2)
Quarter: 2024Q4

REPORT INFORMATION
  Report Type: Spontaneous
  Country: CH (occurrence: CH)
  Receive Date: 20241017
  Receipt Date: 20241018
  Transmission Date: 20250115
  Serious: No
  Sender: ROCHE
  Company Number: CH-ROCHE-3483306

PATIENT
  Age: 21 Year
  Sex: Female

DRUGS (8)
  1. RITUXIMAB [Suspect]
     Active Substance: RITUXIMAB
     Indication: Antisynthetase syndrome
     Dosage: 2 X 1 G EVERY 6 MONTHS
     Route: 065
     Dates: start: 2008
  2. TOCILIZUMAB [Suspect]
     Active Substance: TOCILIZUMAB
     Indication: Antisynthetase syndrome
     Dosage: PER MONTH
     Route: 042
     Dates: start: 2013
  3. TADALAFIL [Concomitant]
     Active Substance: TADALAFIL
  4. ILOPROST [Concomitant]
     Active Substance: ILOPROST
  5. BOSENTAN [Concomitant]
     Active Substance: BOSENTAN
  6. FLUOXETINE [Concomitant]
     Active Substance: FLUOXETINE HYDROCHLORIDE
  7. PREDNISONE [Concomitant]
     Active Substance: PREDNISONE
  8. PREDNISONE [Concomitant]
     Active Substance: PREDNISONE

REACTIONS (2)
  - Off label use [Unknown]
  - No adverse event [Unknown]
